FAERS Safety Report 20205568 (Version 1)
Quarter: 2021Q4

REPORT INFORMATION
  Report Type: Spontaneous
  Country: DE (occurrence: DE)
  Receive Date: 20211220
  Receipt Date: 20211220
  Transmission Date: 20220303
  Serious: Yes (Hospitalization)
  Sender: FDA-Public Use
  Company Number: DE-NOVARTISPH-NVSC2021DE286213

PATIENT
  Age: 69 Year
  Sex: Male
  Weight: 85 kg

DRUGS (6)
  1. CARBAMAZEPINE [Suspect]
     Active Substance: CARBAMAZEPINE
     Indication: Product used for unknown indication
     Dosage: 200 MG, BID (200 MG, 2-0-2-0)
     Route: 048
  2. PANTOPRAZOLE SODIUM [Concomitant]
     Active Substance: PANTOPRAZOLE SODIUM
     Indication: Product used for unknown indication
     Dosage: UNK (20 MG, 1-0-0-0)
     Route: 048
  3. BENSERAZIDE [Concomitant]
     Active Substance: BENSERAZIDE
     Indication: Product used for unknown indication
     Dosage: UNK (25|100 MG, 0-0-0-1)
     Route: 048
  4. MIRTAZAPINE [Concomitant]
     Active Substance: MIRTAZAPINE
     Indication: Product used for unknown indication
     Dosage: 15 MG, QD (15 MG, 0-0-0-1, SCHMELZTABLETTEN)
     Route: 048
  5. RAMIPRIL [Concomitant]
     Active Substance: RAMIPRIL
     Indication: Product used for unknown indication
     Dosage: 2.5 MG, QD (2.5 MG, 1-0-0-0, TABLETTEN)
     Route: 048
  6. TILIDINE [Concomitant]
     Active Substance: TILIDINE
     Indication: Product used for unknown indication
     Dosage: UNK (4|50 MG, 1-0-1-0, RETARD-TABLETTEN)
     Route: 048

REACTIONS (5)
  - General physical health deterioration [Unknown]
  - Dizziness [Unknown]
  - Depressed mood [Unknown]
  - Vomiting [Unknown]
  - Nausea [Unknown]
